FAERS Safety Report 16950581 (Version 1)
Quarter: 2019Q4

REPORT INFORMATION
  Report Type: Spontaneous
  Country: HK (occurrence: HK)
  Receive Date: 20191023
  Receipt Date: 20191023
  Transmission Date: 20200122
  Serious: Yes (Death)
  Sender: FDA-Public Use
  Company Number: HK-ROCHE-2439906

PATIENT

DRUGS (5)
  1. AVASTIN [Suspect]
     Active Substance: BEVACIZUMAB
     Indication: OVARIAN CANCER RECURRENT
     Dosage: 6 CYCLES OF LIPODOXORUBICIN/AVASTIN
     Route: 065
     Dates: start: 20150212, end: 20150702
  2. TOPOTECAN [Suspect]
     Active Substance: TOPOTECAN HYDROCHLORIDE
     Indication: OVARIAN CANCER RECURRENT
     Dosage: 3 CYCLES OF TOPOTECAN
     Route: 065
     Dates: start: 20160629, end: 20160818
  3. AVASTIN [Suspect]
     Active Substance: BEVACIZUMAB
     Dosage: MAINTENANCE AVASTIN
     Route: 065
     Dates: start: 20150731, end: 20151202
  4. GEMCITABINE. [Suspect]
     Active Substance: GEMCITABINE
     Indication: OVARIAN CANCER RECURRENT
     Dosage: 6 CYCLES OF GEMCITABINE
     Route: 065
     Dates: start: 20160118, end: 20160512
  5. DOXORUBICIN [Suspect]
     Active Substance: DOXORUBICIN
     Indication: OVARIAN CANCER RECURRENT
     Dosage: 6 CYCLES OF LIPODOXORUBICIN/AVASTIN
     Route: 065
     Dates: start: 20150212, end: 20150702

REACTIONS (4)
  - General physical health deterioration [Fatal]
  - Carbohydrate antigen 125 increased [Unknown]
  - Hypertension [Unknown]
  - Proteinuria [Unknown]
